FAERS Safety Report 7190099-4 (Version None)
Quarter: 2010Q4

REPORT INFORMATION
  Report Type: 
  Country: None (occurrence: None)
  Receive Date: 20101223
  Receipt Date: 20101220
  Transmission Date: 20110411
  Serious: Yes (Other)
  Sender: FDA-Public Use
  Company Number: US-PFIZER INC-2010176113

PATIENT
  Sex: Female

DRUGS (2)
  1. ARTHROTEC [Suspect]
     Indication: ARTHROPATHY
     Dosage: UNK
  2. ARTHROTEC [Suspect]
     Indication: ARTHRITIS

REACTIONS (2)
  - HYPERSENSITIVITY [None]
  - RASH GENERALISED [None]
